FAERS Safety Report 9129427 (Version 1)
Quarter: 2013Q1

REPORT INFORMATION
  Report Type: Spontaneous
  Country: US (occurrence: US)
  Receive Date: 20130228
  Receipt Date: 20130228
  Transmission Date: 20140127
  Serious: Yes (Death, Hospitalization)
  Sender: FDA-Public Use
  Company Number: US-GLAXOSMITHKLINE-A0996429A

PATIENT
  Age: 57 Year
  Sex: Male

DRUGS (1)
  1. AVANDIA [Suspect]
     Indication: DIABETES MELLITUS
     Route: 048

REACTIONS (6)
  - Death [Fatal]
  - Cardiac failure congestive [Unknown]
  - Myocardial infarction [Unknown]
  - Cardiac operation [Unknown]
  - Peripheral vascular disorder [Unknown]
  - Cardiac pacemaker insertion [Unknown]
